FAERS Safety Report 7558457-3 (Version None)
Quarter: 2011Q2

REPORT INFORMATION
  Report Type: 
  Country: None (occurrence: None)
  Receive Date: 20110620
  Receipt Date: 20110614
  Transmission Date: 20111010
  Serious: Yes (Hospitalization)
  Sender: FDA-Public Use
  Company Number: DE-B.I. PHARMACEUTICALS,INC./RIDGEFIELD-2011-DE-03559DE

PATIENT
  Age: 73 Year
  Sex: Male
  Weight: 93 kg

DRUGS (10)
  1. METAMIZOL [Concomitant]
     Indication: PAIN
     Dosage: 30 ANZ
     Route: 048
     Dates: start: 20100923, end: 20100923
  2. TRAMADOL HYDROCHLORIDE [Concomitant]
     Indication: PAIN
     Route: 048
     Dates: start: 20100924, end: 20100924
  3. PRADAXA [Suspect]
     Indication: THROMBOSIS PROPHYLAXIS
     Dosage: 110 MG
     Route: 048
     Dates: start: 20100922, end: 20100922
  4. DIPIDOLOR [Concomitant]
     Indication: PAIN
     Dosage: 2 ANZ
     Route: 058
     Dates: start: 20100922, end: 20100922
  5. PANTOPRAZOL 40MG [Concomitant]
     Indication: PROPHYLAXIS AGAINST GASTROINTESTINAL ULCER
     Dosage: 40 MG
     Route: 048
     Dates: start: 20100101
  6. PRADAXA [Suspect]
     Dosage: 220 MG
     Route: 048
     Dates: start: 20100923, end: 20101027
  7. ARCOXIA [Concomitant]
     Indication: PAIN
     Dosage: 1 ANZ
     Route: 048
     Dates: start: 20100922, end: 20101030
  8. BERLOSIN INJEKT [Concomitant]
     Indication: PAIN
     Dosage: 1000 MG
     Route: 042
     Dates: start: 20100922, end: 20100922
  9. VIANI 50/250 [Concomitant]
     Indication: CHRONIC OBSTRUCTIVE PULMONARY DISEASE
     Dosage: 2 ANZ
     Route: 055
  10. SPIRIVA [Concomitant]
     Indication: CHRONIC OBSTRUCTIVE PULMONARY DISEASE
     Dosage: 2 ANZ
     Route: 055

REACTIONS (1)
  - WOUND SECRETION [None]
